FAERS Safety Report 7996049-2 (Version None)
Quarter: 2011Q4

REPORT INFORMATION
  Report Type: 
  Country: None (occurrence: None)
  Receive Date: 20111220
  Receipt Date: 20111209
  Transmission Date: 20120403
  Serious: Yes (Other)
  Sender: FDA-Public Use
  Company Number: PHEH2011US009698

PATIENT
  Sex: Female

DRUGS (1)
  1. EXJADE [Suspect]
     Dosage: 875 MG QD
     Route: 048
     Dates: start: 20111111, end: 20111205

REACTIONS (6)
  - DEAFNESS [None]
  - NASOPHARYNGITIS [None]
  - NAUSEA [None]
  - COUGH [None]
  - HAEMOPTYSIS [None]
  - ABDOMINAL PAIN UPPER [None]
